FAERS Safety Report 4536896-2 (Version None)
Quarter: 2004Q4

REPORT INFORMATION
  Report Type: 
  Country: None (occurrence: None)
  Receive Date: 20041223
  Receipt Date: 20041208
  Transmission Date: 20050328
  Serious: Yes (Other)
  Sender: FDA-Public Use
  Company Number: SE-GLAXOSMITHKLINE-B0362600A

PATIENT
  Age: 6 Year
  Sex: Male

DRUGS (4)
  1. LAMICTAL [Suspect]
     Indication: AFFECTIVE DISORDER
     Dosage: 25MG PER DAY
     Route: 048
     Dates: start: 20040724, end: 20040817
  2. ERGENYL [Suspect]
     Dosage: 600MG PER DAY
     Route: 048
     Dates: start: 20030101, end: 20040817
  3. CONCERTA [Concomitant]
  4. RITALIN [Concomitant]

REACTIONS (10)
  - MUCOSA VESICLE [None]
  - ORAL MUCOSAL BLISTERING [None]
  - PHOTOSENSITIVITY REACTION [None]
  - PYREXIA [None]
  - RASH ERYTHEMATOUS [None]
  - RASH GENERALISED [None]
  - RASH PAPULAR [None]
  - RASH PRURITIC [None]
  - RASH VESICULAR [None]
  - STEVENS-JOHNSON SYNDROME [None]
